FAERS Safety Report 8909161 (Version 2)
Quarter: 2013Q1

REPORT INFORMATION
  Report Type: Spontaneous
  Country: DE (occurrence: DE)
  Receive Date: 20121114
  Receipt Date: 20130107
  Transmission Date: 20140127
  Serious: Yes (Death, Other)
  Sender: FDA-Public Use
  Company Number: PHHY2012DE069392

PATIENT
  Sex: Male

DRUGS (2)
  1. TASIGNA [Suspect]
     Indication: GASTROINTESTINAL STROMAL TUMOUR
     Dosage: 600 MG, DAY
     Route: 048
     Dates: start: 20120803, end: 20120806
  2. TASIGNA [Suspect]
     Dosage: 600 MG, DAY
     Route: 048
     Dates: start: 20120808

REACTIONS (4)
  - Malignant neoplasm progression [Fatal]
  - Leukopenia [Not Recovered/Not Resolved]
  - Neutropenia [Unknown]
  - Anaemia [Unknown]
